FAERS Safety Report 4522321-4 (Version None)
Quarter: 2004Q4

REPORT INFORMATION
  Report Type: 
  Country: None (occurrence: None)
  Receive Date: 20041207
  Receipt Date: 20041130
  Transmission Date: 20050328
  Serious: Yes (Life-Threatening, Hospitalization)
  Sender: FDA-Public Use
  Company Number: 200410641BYL

PATIENT
  Age: 26 Year
  Sex: Male
  Weight: 68.7 kg

DRUGS (5)
  1. CIPROXAN (CIPROFLOXACIN HYDROCHLORIDE) [Suspect]
     Indication: TONSILLITIS
     Dosage: TID, ORAL
     Route: 048
     Dates: start: 20041007, end: 20041010
  2. PL [Suspect]
     Indication: TONSILLITIS
     Dosage: TID, ORAL
     Route: 048
     Dates: start: 20041002, end: 20041010
  3. DASEN (SERRAPEPTASE) [Suspect]
     Indication: TONSILLITIS
     Dosage: TID, ORAL
     Route: 048
     Dates: start: 20041002, end: 20041010
  4. TRANEXAMIC ACID [Suspect]
     Indication: TONSILLITIS
     Dosage: TID, ORAL
     Route: 048
     Dates: start: 20041002, end: 20041010
  5. MYCASAAL (MEFENAMIC ACID) [Suspect]
     Indication: TONSILLITIS
     Dosage: 250 MG, PRN, ORAL
     Route: 048
     Dates: start: 20041002, end: 20041010

REACTIONS (3)
  - DEPRESSED LEVEL OF CONSCIOUSNESS [None]
  - RENAL FAILURE ACUTE [None]
  - RHABDOMYOLYSIS [None]
